FAERS Safety Report 20377307 (Version 1)
Quarter: 2022Q1

REPORT INFORMATION
  Report Type: Spontaneous
  Country: US (occurrence: US)
  Receive Date: 20220126
  Receipt Date: 20220126
  Transmission Date: 20220424
  Serious: Yes (Other)
  Sender: FDA-Public Use
  Company Number: US-ABBVIE-22K-163-4248716-00

PATIENT
  Age: 38 Year
  Sex: Female
  Weight: 43.09 kg

DRUGS (3)
  1. PAXLOVID [Suspect]
     Active Substance: NIRMATRELVIR\RITONAVIR
     Indication: Product used for unknown indication
     Route: 065
  2. PAXLOVID [Suspect]
     Active Substance: NIRMATRELVIR\RITONAVIR
     Indication: Product used for unknown indication
     Route: 065
  3. COUMADIN [Concomitant]
     Active Substance: WARFARIN SODIUM
     Indication: Product used for unknown indication

REACTIONS (16)
  - Hallucination [Unknown]
  - Illness [Unknown]
  - Anxiety [Unknown]
  - Weight bearing difficulty [Unknown]
  - Dysstasia [Unknown]
  - Headache [Unknown]
  - Muscle tightness [Unknown]
  - Posture abnormal [Unknown]
  - Visual impairment [Unknown]
  - Ageusia [Unknown]
  - Retching [Unknown]
  - Asthenia [Unknown]
  - Myalgia [Unknown]
  - Diarrhoea [Unknown]
  - Fatigue [Unknown]
  - Dysgeusia [Unknown]
